FAERS Safety Report 5148996-7 (Version None)
Quarter: 2006Q4

REPORT INFORMATION
  Report Type: 
  Country: None (occurrence: None)
  Receive Date: 20061108
  Receipt Date: 20061026
  Transmission Date: 20070319
  Serious: Yes (Hospitalization, Other)
  Sender: FDA-Public Use
  Company Number: HQWYE698427OCT06

PATIENT
  Age: 65 Year
  Sex: Female
  Weight: 90.8 kg

DRUGS (3)
  1. EFFEXOR XR [Suspect]
     Indication: DEPRESSION
     Dosage: 150 MG 1X PER 1 DAY, ORAL
     Route: 048
     Dates: start: 20050401, end: 20060801
  2. EFFEXOR XR [Suspect]
     Indication: DEPRESSION
     Dosage: 150 MG 1X PER 1 DAY, ORAL
     Route: 048
     Dates: start: 20061001
  3. ALCOHOL (ETHANOL, ) [Suspect]
     Dosage: ^HEAVILY ON A DAILY BASIS^

REACTIONS (5)
  - ALCOHOLISM [None]
  - AMMONIA INCREASED [None]
  - BLOOD BILIRUBIN INCREASED [None]
  - HEPATOCELLULAR DAMAGE [None]
  - LOSS OF CONSCIOUSNESS [None]
